FAERS Safety Report 8394935-5 (Version None)
Quarter: 2012Q2

REPORT INFORMATION
  Report Type: 
  Country: None (occurrence: None)
  Receive Date: 20120530
  Receipt Date: 20110927
  Transmission Date: 20120825
  Serious: No
  Sender: FDA-Public Use
  Company Number: US-GLAXOSMITHKLINE-A0946467A

PATIENT
  Age: 50 Year
  Sex: Female
  Weight: 78 kg

DRUGS (10)
  1. POTASSIUM CHLORIDE [Concomitant]
  2. ADVAIR DISKUS 100/50 [Concomitant]
  3. FLOLAN [Suspect]
     Indication: PULMONARY ARTERIAL HYPERTENSION
     Dosage: 20NGKM UNKNOWN
     Route: 042
     Dates: start: 20100402
  4. VICODIN [Concomitant]
  5. SYMBICORT [Concomitant]
  6. FUROSEMIDE [Concomitant]
  7. DIGOXIN [Concomitant]
  8. ALBUTEROL [Concomitant]
  9. ASPIRIN [Concomitant]
  10. GABAPENTIN [Concomitant]

REACTIONS (3)
  - PAIN IN EXTREMITY [None]
  - FLUSHING [None]
  - HEADACHE [None]
